FAERS Safety Report 11335674 (Version 1)
Quarter: 2015Q3

REPORT INFORMATION
  Report Type: Spontaneous
  Country: US (occurrence: None)
  Receive Date: 20150731
  Receipt Date: 20150731
  Transmission Date: 20151125
  Serious: Yes (Life-Threatening, Hospitalization, Other)
  Sender: FDA-Public Use
  Company Number: None

PATIENT
  Age: 95 Year
  Sex: Male
  Weight: 53.8 kg

DRUGS (2)
  1. CLONIDINE. [Suspect]
     Active Substance: CLONIDINE
     Indication: ATRIOVENTRICULAR BLOCK
     Route: 048
     Dates: start: 20150601, end: 20150601
  2. CLONIDINE. [Suspect]
     Active Substance: CLONIDINE
     Indication: BRADYCARDIA
     Route: 048
     Dates: start: 20150601, end: 20150601

REACTIONS (3)
  - Palpitations [None]
  - Atrioventricular block [None]
  - Bradycardia [None]

NARRATIVE: CASE EVENT DATE: 20150601
